FAERS Safety Report 18581699 (Version 1)
Quarter: 2020Q4

REPORT INFORMATION
  Report Type: Spontaneous
  Country: US (occurrence: US)
  Receive Date: 20201203
  Receipt Date: 20201203
  Transmission Date: 20210114
  Serious: No
  Sender: FDA-Public Use
  Company Number: None

PATIENT
  Age: 63 Year
  Sex: Male

DRUGS (1)
  1. TALTZ [Suspect]
     Active Substance: IXEKIZUMAB
     Indication: PSORIASIS
     Dates: start: 20190715

REACTIONS (3)
  - Product dose omission issue [None]
  - Wrong technique in device usage process [None]
  - Upper limb fracture [None]

NARRATIVE: CASE EVENT DATE: 20201202
